FAERS Safety Report 18491256 (Version 2)
Quarter: 2020Q4

REPORT INFORMATION
  Report Type: Spontaneous
  Country: DE (occurrence: DE)
  Receive Date: 20201111
  Receipt Date: 20201120
  Transmission Date: 20210114
  Serious: Yes (Death, Other)
  Sender: FDA-Public Use
  Company Number: DE-AMGEN-DEUNI2020182275

PATIENT
  Age: 22 Year

DRUGS (1)
  1. ENBREL [Suspect]
     Active Substance: ETANERCEPT
     Indication: JUVENILE IDIOPATHIC ARTHRITIS
     Dosage: UNK
     Route: 065

REACTIONS (2)
  - Arrhythmia [Fatal]
  - Myocarditis [Fatal]
